FAERS Safety Report 4553461-1 (Version None)
Quarter: 2005Q1

REPORT INFORMATION
  Report Type: 
  Country: None (occurrence: None)
  Receive Date: 20050112
  Receipt Date: 20041229
  Transmission Date: 20050727
  Serious: Yes (Other)
  Sender: FDA-Public Use
  Company Number: FR_041105211

PATIENT
  Age: 57 Year
  Sex: Male

DRUGS (7)
  1. PERGOLIDE MESYLATE [Suspect]
     Indication: PARKINSON'S DISEASE
     Dosage: 1 MG/3 DAY
     Dates: start: 20040304, end: 20041105
  2. MODOPAR [Concomitant]
  3. SINEMET [Concomitant]
  4. CLONAZEPAM [Concomitant]
  5. CELESTONE [Concomitant]
  6. APOKINON (APOMORPHINE HYDROCHLORIDE) [Concomitant]
  7. DI-ANTALVIC [Concomitant]

REACTIONS (3)
  - MITRAL VALVE DISEASE [None]
  - PULMONARY HYPERTENSION [None]
  - TRICUSPID VALVE INCOMPETENCE [None]
